FAERS Safety Report 6812590-X (Version None)
Quarter: 2010Q3

REPORT INFORMATION
  Report Type: 
  Country: None (occurrence: None)
  Receive Date: 20100701
  Receipt Date: 20100621
  Transmission Date: 20110219
  Serious: Yes (Other)
  Sender: FDA-Public Use
  Company Number: US-PFIZER INC-2010078004

PATIENT
  Sex: Female
  Weight: 52.154 kg

DRUGS (8)
  1. LYRICA [Suspect]
     Indication: FIBROMYALGIA
     Dosage: 75 MG, 2X/DAY
     Route: 048
     Dates: start: 20100301, end: 20100601
  2. DIAZEPAM [Concomitant]
     Dosage: UNK
  3. LISINOPRIL [Concomitant]
     Dosage: UNK
  4. CALCIUM [Concomitant]
     Dosage: UNK
  5. PREDNISONE [Concomitant]
     Dosage: UNK
     Dates: start: 20070101
  6. MORPHINE [Concomitant]
     Dosage: 100 MG, 4X/DAY
     Dates: start: 20070101
  7. SOMA [Concomitant]
     Dosage: UNK, AS NEEDED
     Dates: start: 20070101
  8. XANAX [Concomitant]
     Dosage: UNK, AS NEEDED
     Dates: start: 20070101

REACTIONS (5)
  - DYSKINESIA [None]
  - JOINT LOCK [None]
  - RED BLOOD CELL COUNT INCREASED [None]
  - SPEECH DISORDER [None]
  - WHITE BLOOD CELL COUNT DECREASED [None]
